FAERS Safety Report 20819815 (Version 1)
Quarter: 2022Q2

REPORT INFORMATION
  Report Type: Report from Study
  Country: IT (occurrence: IT)
  Receive Date: 20220512
  Receipt Date: 20220512
  Transmission Date: 20220721
  Serious: Yes (Other)
  Sender: FDA-Public Use
  Company Number: None

PATIENT
  Age: 23 Year
  Sex: Male

DRUGS (3)
  1. XANAX [Suspect]
     Active Substance: ALPRAZOLAM
     Dates: start: 20220316, end: 20220316
  2. CHLORPROMAZINE [Suspect]
     Active Substance: CHLORPROMAZINE
     Dosage: 300 MG, TOTAL
  3. VALIUM [Suspect]
     Active Substance: DIAZEPAM
     Dosage: 140 DROP, TOTAL
     Dates: start: 20220316, end: 20220316

REACTIONS (2)
  - Hypersomnia [Unknown]
  - Intentional self-injury [Unknown]

NARRATIVE: CASE EVENT DATE: 20220317
